FAERS Safety Report 8290794-X (Version None)
Quarter: 2012Q2

REPORT INFORMATION
  Report Type: 
  Country: None (occurrence: None)
  Receive Date: 20120412
  Receipt Date: 20120412
  Transmission Date: 20120825
  Serious: Yes (Hospitalization)
  Sender: FDA-Public Use
  Company Number: None

PATIENT
  Age: 62 Year
  Sex: Male
  Weight: 47 kg

DRUGS (6)
  1. COMPAZINE [Concomitant]
  2. CABAZITAXEL - 40MG [Suspect]
     Indication: GASTRIC CANCER
     Dosage: 25 MG/M2 IV EVERY 3 WEEKS
     Route: 042
     Dates: start: 20120327
  3. CABAZITAXEL - 40MG [Suspect]
     Indication: GASTRIC CANCER
     Dosage: 25 MG/M2 IV EVERY 3 WEEKS
     Route: 042
     Dates: start: 20120307
  4. TPN NEULASTA [Concomitant]
  5. MORPHINE [Concomitant]
  6. ZOFRAN [Concomitant]

REACTIONS (5)
  - BLOOD PRESSURE SYSTOLIC DECREASED [None]
  - HYPOTENSION [None]
  - ANAEMIA [None]
  - PNEUMONIA [None]
  - PYREXIA [None]
